FAERS Safety Report 6717813-3 (Version None)
Quarter: 2010Q2

REPORT INFORMATION
  Report Type: 
  Country: None (occurrence: None)
  Receive Date: 20100510
  Receipt Date: 20100302
  Transmission Date: 20101027
  Serious: No
  Sender: FDA-Public Use
  Company Number: US-BAYER-201015757NA

PATIENT
  Age: 56 Year
  Sex: Male
  Weight: 95 kg

DRUGS (4)
  1. ULTRAVIST 240 [Suspect]
     Indication: HAEMATURIA
     Dosage: TOTAL DAILY DOSE: 200 ML  UNIT DOSE: 200 ML
     Route: 042
     Dates: start: 20100302, end: 20100302
  2. AMLODIPINE [Concomitant]
  3. ALLOPURINOL [Concomitant]
  4. BOSTILLIC [Concomitant]

REACTIONS (1)
  - SNEEZING [None]
